FAERS Safety Report 5468771-3 (Version None)
Quarter: 2007Q3

REPORT INFORMATION
  Report Type: 
  Country: None (occurrence: None)
  Receive Date: 20070820
  Receipt Date: 20070507
  Transmission Date: 20080115
  Serious: No
  Sender: FDA-Public Use
  Company Number: WAES 0704USA01639

PATIENT
  Age: 67 Year
  Sex: Male

DRUGS (12)
  1. JANUVIA [Suspect]
     Indication: TYPE 2 DIABETES MELLITUS
     Dosage: 100 MG/DAILY/PO
     Route: 048
  2. APRESOLINE [Concomitant]
  3. COUMADIN [Concomitant]
  4. DULCOLAX [Concomitant]
  5. LASIX [Concomitant]
  6. MOBIC [Concomitant]
  7. NEXIUM [Concomitant]
  8. ALLOPURINOL [Concomitant]
  9. AMIODARONE [Concomitant]
  10. DILTIAZEM [Concomitant]
  11. GLUCOSAMINE [Concomitant]
  12. TRIAZOLAM [Concomitant]

REACTIONS (1)
  - LIVER FUNCTION TEST ABNORMAL [None]
